FAERS Safety Report 6297634-9 (Version None)
Quarter: 2009Q3

REPORT INFORMATION
  Report Type: 
  Country: None (occurrence: None)
  Receive Date: 20090805
  Receipt Date: 20090727
  Transmission Date: 20100115
  Serious: Yes (Hospitalization)
  Sender: FDA-Public Use
  Company Number: KR-PFIZER INC-2009233101

PATIENT
  Age: 56 Year

DRUGS (4)
  1. SUNITINIB MALATE [Suspect]
     Indication: ADENOCARCINOMA
     Dosage: 37 MG, 1X/DAY
     Route: 048
     Dates: start: 20090413
  2. LOPERAMIDE [Concomitant]
     Route: 048
     Dates: start: 20090427
  3. FENTANYL [Concomitant]
     Route: 062
     Dates: start: 20071203
  4. METOCLOPRAMIDE [Concomitant]
     Route: 048
     Dates: start: 20081001

REACTIONS (1)
  - AZOTAEMIA [None]
